FAERS Safety Report 20773829 (Version 2)
Quarter: 2022Q4

REPORT INFORMATION
  Report Type: Spontaneous
  Country: JP (occurrence: JP)
  Receive Date: 20220502
  Receipt Date: 20221125
  Transmission Date: 20230112
  Serious: Yes (Death, Hospitalization, Other)
  Sender: FDA-Public Use
  Company Number: JP-ONO-2022JP010815

PATIENT
  Age: 65 Year
  Sex: Female
  Weight: 39 kg

DRUGS (3)
  1. OPDIVO [Suspect]
     Active Substance: NIVOLUMAB
     Indication: Non-small cell lung cancer recurrent
     Route: 041
     Dates: start: 20210121, end: 20210525
  2. CARBIMAZOLE [Concomitant]
     Active Substance: CARBIMAZOLE
     Indication: Product used for unknown indication
     Route: 048
     Dates: end: 20210531
  3. CARBIMAZOLE [Concomitant]
     Active Substance: CARBIMAZOLE
     Route: 048
     Dates: start: 20210601

REACTIONS (4)
  - Cardiomyopathy [Not Recovered/Not Resolved]
  - Renal impairment [Unknown]
  - Blood thyroid stimulating hormone decreased [Unknown]
  - Malignant neoplasm progression [Fatal]

NARRATIVE: CASE EVENT DATE: 20210525
